FAERS Safety Report 11099904 (Version 1)
Quarter: 2015Q2

REPORT INFORMATION
  Report Type: Spontaneous
  Country: US (occurrence: US)
  Receive Date: 20150508
  Receipt Date: 20150508
  Transmission Date: 20150821
  Serious: No
  Sender: FDA-Public Use
  Company Number: US-BAXTER-2015BAX020711

PATIENT
  Age: 70 Year
  Sex: Male

DRUGS (2)
  1. EXSEPT PLUS [Suspect]
     Active Substance: SODIUM HYPOCHLORITE
     Indication: ANTIBIOTIC THERAPY
     Route: 061
     Dates: start: 20150305
  2. DIANEAL LOW CALCIUM PERITONEAL DIALYSIS SOLUTION WITH DEXTROSE [Suspect]
     Active Substance: CALCIUM CHLORIDE\DEXTROSE\MAGNESIUM CHLORIDE\SODIUM CHLORIDE\SODIUM LACTATE
     Indication: CHRONIC KIDNEY DISEASE
     Route: 033
     Dates: start: 201502

REACTIONS (1)
  - Application site erythema [Recovered/Resolved]

NARRATIVE: CASE EVENT DATE: 20150305
